FAERS Safety Report 5870471-2 (Version None)
Quarter: 2008Q3

REPORT INFORMATION
  Report Type: 
  Country: None (occurrence: None)
  Receive Date: 20080904
  Receipt Date: 20071106
  Transmission Date: 20090109
  Serious: No
  Sender: FDA-Public Use
  Company Number: US-BRISTOL-MYERS SQUIBB COMPANY-13968961

PATIENT
  Age: 50 Year
  Sex: Female
  Weight: 120 kg

DRUGS (1)
  1. DEFINITY [Suspect]
     Indication: ECHOCARDIOGRAM
     Dosage: DOSAGE FORM EQUALS VIALS. 4 TO 5CC(1 VIAL DEFINITY DILUTED IN 8.7ML NONBACTERIOSTATIC SALINE).
     Route: 042
     Dates: start: 20071105, end: 20071105

REACTIONS (1)
  - CHEST PAIN [None]
